FAERS Safety Report 24115523 (Version 1)
Quarter: 2024Q3

REPORT INFORMATION
  Report Type: Spontaneous
  Country: US (occurrence: US)
  Receive Date: 20240721
  Receipt Date: 20240721
  Transmission Date: 20241016
  Serious: No
  Sender: NOVO NORDISK
  Company Number: US-NOVOPROD-1223446

PATIENT
  Age: 24 Year
  Sex: Female

DRUGS (1)
  1. WEGOVY [Suspect]
     Active Substance: SEMAGLUTIDE
     Indication: Weight control
     Dosage: 0.25 MG, QW
     Route: 058
     Dates: start: 20240508, end: 20240508

REACTIONS (7)
  - Mesenteric lymphadenitis [Not Recovered/Not Resolved]
  - Tachypnoea [Unknown]
  - Lip haemorrhage [Unknown]
  - Chapped lips [Unknown]
  - Dehydration [Unknown]
  - Dizziness [Unknown]
  - Tachycardia [Unknown]

NARRATIVE: CASE EVENT DATE: 20240509
